FAERS Safety Report 16474063 (Version 2)
Quarter: 2019Q3

REPORT INFORMATION
  Report Type: Spontaneous
  Country: IN (occurrence: IN)
  Receive Date: 20190625
  Receipt Date: 20190708
  Transmission Date: 20191004
  Serious: Yes (Death, Life-Threatening, Hospitalization, Other)
  Sender: FDA-Public Use
  Company Number: IN-SA-2019SA171771

PATIENT
  Age: 38 Year
  Sex: Female

DRUGS (11)
  1. DEXAMETHASONE SALT NOT SPECIFIED [Suspect]
     Active Substance: DEXAMETHASONE
     Indication: HIV INFECTION
  2. TENOFOVIR DISOPROXIL FUMARATE. [Suspect]
     Active Substance: TENOFOVIR DISOPROXIL FUMARATE
     Indication: HIV INFECTION
  3. EFAVIRENZ. [Suspect]
     Active Substance: EFAVIRENZ
     Indication: HIV INFECTION
  4. ETHAMBUTOL [Concomitant]
     Active Substance: ETHAMBUTOL HYDROCHLORIDE
     Indication: TUBERCULOSIS
  5. LAMIVUDINE. [Suspect]
     Active Substance: LAMIVUDINE
     Indication: HIV INFECTION
  6. ISONIAZID. [Suspect]
     Active Substance: ISONIAZID
     Indication: TUBERCULOSIS
  7. CLARITHROMYCIN. [Concomitant]
     Active Substance: CLARITHROMYCIN
     Indication: EVIDENCE BASED TREATMENT
  8. RIFAMPICIN [Suspect]
     Active Substance: RIFAMPIN
     Indication: TUBERCULOSIS
  9. AMIKACIN. [Concomitant]
     Active Substance: AMIKACIN
     Indication: TUBERCULOSIS
  10. DEXAMETHASONE SALT NOT SPECIFIED [Suspect]
     Active Substance: DEXAMETHASONE
     Indication: HAEMOPHAGOCYTIC LYMPHOHISTIOCYTOSIS
     Dosage: 16 MG, QD
  11. LEVOFLOXACIN. [Concomitant]
     Active Substance: LEVOFLOXACIN
     Indication: TUBERCULOSIS

REACTIONS (13)
  - Haemophagocytic lymphohistiocytosis [Recovering/Resolving]
  - Hepatosplenomegaly [Recovering/Resolving]
  - Hypochromic anaemia [Recovering/Resolving]
  - HIV infection [Recovering/Resolving]
  - Hyperbilirubinaemia [Recovering/Resolving]
  - Pyrexia [Recovering/Resolving]
  - Dyspnoea [Fatal]
  - Treatment failure [Recovering/Resolving]
  - Crepitations [Recovering/Resolving]
  - Blood bilirubin increased [Unknown]
  - Pneumonia [Fatal]
  - Jaundice [Recovering/Resolving]
  - Pancytopenia [Recovering/Resolving]
